FAERS Safety Report 22654571 (Version 1)
Quarter: 2023Q2

REPORT INFORMATION
  Report Type: Spontaneous
  Country: US (occurrence: US)
  Receive Date: 20230629
  Receipt Date: 20230629
  Transmission Date: 20230722
  Serious: No
  Sender: FDA-Public Use
  Company Number: US-TAKEDA-2023TUS063128

PATIENT
  Age: 43 Year
  Sex: Male

DRUGS (1)
  1. VELCADE [Suspect]
     Active Substance: BORTEZOMIB
     Indication: Transplant rejection
     Dosage: 1.3 MILLIGRAM/SQ. METER
     Route: 065
     Dates: start: 20230625

REACTIONS (2)
  - No adverse event [Unknown]
  - Off label use [Unknown]
